FAERS Safety Report 13296136 (Version 2)
Quarter: 2017Q1

REPORT INFORMATION
  Report Type: Report from Study
  Country: JP (occurrence: JP)
  Receive Date: 20170304
  Receipt Date: 20170316
  Transmission Date: 20170428
  Serious: Yes (Hospitalization)
  Sender: FDA-Public Use
  Company Number: JP-ACCORD-048878

PATIENT
  Age: 68 Year
  Sex: Male

DRUGS (4)
  1. LEVOFOLINATE [Concomitant]
     Active Substance: LEVOLEUCOVORIN CALCIUM
     Indication: COLORECTAL CANCER
     Dosage: ADMINISTERED FOR 2 H
  2. FLUOROURACIL. [Suspect]
     Active Substance: FLUOROURACIL
     Indication: COLORECTAL CANCER
     Dosage: BOLUS 5-FU. ?AFTER A HEMODIALYSIS, 5-FU CONTINUOUS INFUSION (2400 MG/M2) WAS INITIATED FOR 46 HRS.
  3. BEVACIZUMAB [Concomitant]
     Active Substance: BEVACIZUMAB
     Indication: COLORECTAL CANCER
  4. OXALIPLATIN. [Concomitant]
     Active Substance: OXALIPLATIN
     Indication: COLORECTAL CANCER
     Dosage: ADMINISTERED FOR 2 H

REACTIONS (3)
  - Hyperammonaemia [Recovered/Resolved]
  - Encephalopathy [Recovering/Resolving]
  - Metabolic acidosis [Recovering/Resolving]
